APPROVED DRUG PRODUCT: DILANTIN
Active Ingredient: PHENYTOIN SODIUM
Strength: 100MG EXTENDED
Dosage Form/Route: CAPSULE;ORAL
Application: A084349 | Product #002 | TE Code: AB
Applicant: VIATRIS SPECIALTY LLC
Approved: Approved Prior to Jan 1, 1982 | RLD: Yes | RS: Yes | Type: RX